FAERS Safety Report 18655345 (Version 1)
Quarter: 2020Q4

REPORT INFORMATION
  Report Type: Spontaneous
  Country: FR (occurrence: FR)
  Receive Date: 20201223
  Receipt Date: 20201223
  Transmission Date: 20210114
  Serious: Yes (Other)
  Sender: FDA-Public Use
  Company Number: FR-TEVA-2020-FR-1860272

PATIENT
  Age: 2 Year
  Sex: Male
  Weight: 18 kg

DRUGS (2)
  1. NEISVAC-C [Suspect]
     Active Substance: MENINGOCOCCAL POLYSACCHARIDE VACCINE C
     Indication: IMMUNISATION
     Dosage: UNIT DOSE : 1 DOSAGE FORMS
     Dates: start: 20170506, end: 20170506
  2. AMOXICILLINE [Suspect]
     Active Substance: AMOXICILLIN
     Indication: RASH SCARLATINIFORM
     Dosage: UNIT DOSE : 500 MG
     Route: 048
     Dates: start: 20200510, end: 20200516

REACTIONS (4)
  - Pyrexia [Recovered/Resolved]
  - Urticaria chronic [Recovered/Resolved]
  - Erythema multiforme [Recovered/Resolved]
  - Rash scarlatiniform [Recovered/Resolved]

NARRATIVE: CASE EVENT DATE: 201705
